FAERS Safety Report 24155947 (Version 1)
Quarter: 2024Q3

REPORT INFORMATION
  Report Type: Spontaneous
  Country: US (occurrence: US)
  Receive Date: 20240731
  Receipt Date: 20240731
  Transmission Date: 20241017
  Serious: Yes (Hospitalization)
  Sender: DR REDDYS
  Company Number: US-E2BLSMVVAL-SPO/USA/24/0010826

PATIENT
  Age: 79 Year
  Sex: Male
  Weight: 82 kg

DRUGS (35)
  1. METOPROLOL SUCCINATE [Suspect]
     Active Substance: METOPROLOL SUCCINATE
     Indication: Product used for unknown indication
     Dosage: EXCLUDING 2/17/2024, 2/16/2024, ON WHICH DATES 200MG 1 TAB WAS GIVEN TO THE PATIENT.
     Route: 048
     Dates: start: 20240212, end: 20240313
  2. METOPROLOL SUCCINATE [Suspect]
     Active Substance: METOPROLOL SUCCINATE
     Dosage: 2/17/2024, 2/16/2024
     Route: 048
  3. ERGOCALCIFEROL [Concomitant]
     Active Substance: ERGOCALCIFEROL
     Indication: Product used for unknown indication
     Dosage: 50,000 INTL_UNITS = 1 CAPS, ORAL,
     Route: 048
     Dates: start: 20240214, end: 20240315
  4. ERGOCALCIFEROL [Concomitant]
     Active Substance: ERGOCALCIFEROL
     Route: 048
     Dates: start: 20240214, end: 20240313
  5. CITALOPRAM [Concomitant]
     Active Substance: CITALOPRAM\CITALOPRAM HYDROBROMIDE
     Indication: Product used for unknown indication
     Route: 048
     Dates: start: 20240212, end: 20240313
  6. CYANOCOBALAMIN [Concomitant]
     Active Substance: CYANOCOBALAMIN
     Indication: Product used for unknown indication
     Route: 048
     Dates: start: 20240212, end: 20240313
  7. GABAPENTIN [Concomitant]
     Active Substance: GABAPENTIN
     Indication: Product used for unknown indication
     Route: 048
     Dates: start: 20240212, end: 20240313
  8. PYRIDOXINE [Concomitant]
     Active Substance: PYRIDOXINE
     Indication: Product used for unknown indication
     Route: 065
  9. DEXTROMETHORPHAN PROMETHAZINE [Concomitant]
     Indication: Cough
     Route: 048
     Dates: start: 20240215, end: 20240316
  10. ATORVASTATIN [Concomitant]
     Active Substance: ATORVASTATIN
     Indication: Product used for unknown indication
     Route: 048
     Dates: start: 20240211, end: 20240312
  11. CLONAZEPAM [Concomitant]
     Active Substance: CLONAZEPAM
     Indication: Product used for unknown indication
     Route: 048
     Dates: start: 20240211, end: 20240312
  12. FUROSEMIDE [Concomitant]
     Active Substance: FUROSEMIDE
     Indication: Product used for unknown indication
     Route: 042
     Dates: start: 20240211, end: 20240211
  13. FUROSEMIDE [Concomitant]
     Active Substance: FUROSEMIDE
     Route: 042
     Dates: start: 20240212, end: 20240313
  14. HEPARIN [Concomitant]
     Active Substance: HEPARIN SODIUM
     Indication: Product used for unknown indication
     Route: 058
     Dates: start: 20240211, end: 20240312
  15. ROPINIROLE [Concomitant]
     Active Substance: ROPINIROLE
     Indication: Product used for unknown indication
     Route: 048
  16. ACETAMINOPHEN\HYDROCODONE [Concomitant]
     Active Substance: ACETAMINOPHEN\HYDROCODONE
     Indication: Pain
     Route: 048
     Dates: start: 20240211, end: 20240225
  17. ALBUTEROL [Concomitant]
     Active Substance: ALBUTEROL
     Indication: Wheezing
     Dosage: 180 = MCG 2 PUFFS, AEROSOL, INHALATION, Q4H PRN
     Route: 065
     Dates: start: 20240211, end: 20240312
  18. ACETAMINOPHEN [Concomitant]
     Active Substance: ACETAMINOPHEN
     Indication: Pain
     Route: 048
     Dates: start: 20240211, end: 20240312
  19. ACETAMINOPHEN [Concomitant]
     Active Substance: ACETAMINOPHEN
     Indication: Pyrexia
  20. ALBUTEROL\IPRATROPIUM [Concomitant]
     Active Substance: ALBUTEROL\IPRATROPIUM
     Indication: Dyspnoea
     Route: 065
     Dates: start: 20240211, end: 20240312
  21. ALBUTEROL\IPRATROPIUM [Concomitant]
     Active Substance: ALBUTEROL\IPRATROPIUM
     Route: 065
     Dates: start: 20240214, end: 20240315
  22. MELATONIN [Concomitant]
     Active Substance: MELATONIN
     Indication: Insomnia
     Route: 048
     Dates: start: 20240211, end: 20240312
  23. ONDANSETRON [Concomitant]
     Active Substance: ONDANSETRON
     Indication: Nausea
     Route: 042
     Dates: start: 20240211, end: 20240218
  24. ONDANSETRON [Concomitant]
     Active Substance: ONDANSETRON
     Indication: Vomiting
  25. ASPIRIN [Concomitant]
     Active Substance: ASPIRIN
     Indication: Product used for unknown indication
     Route: 048
     Dates: start: 20240211, end: 20240211
  26. REGADENOSON [Concomitant]
     Active Substance: REGADENOSON
     Indication: Product used for unknown indication
     Route: 042
     Dates: start: 20240216, end: 20240216
  27. PYRIDOXINE HYDROCHLORIDE [Concomitant]
     Active Substance: PYRIDOXINE HYDROCHLORIDE
     Indication: Product used for unknown indication
     Dosage: 25 MG = 0.5 TABS
     Route: 048
     Dates: start: 20240212, end: 20240313
  28. POTASSIUM CHLORIDE [Concomitant]
     Active Substance: POTASSIUM CHLORIDE
     Indication: Product used for unknown indication
     Route: 048
     Dates: start: 20240213, end: 20240213
  29. POTASSIUM CHLORIDE [Concomitant]
     Active Substance: POTASSIUM CHLORIDE
     Route: 048
     Dates: start: 20240214, end: 20240214
  30. OXYGEN [Concomitant]
     Active Substance: OXYGEN
     Dosage: 2 L/MIN
     Route: 045
     Dates: start: 20240211
  31. NALOXONE [Concomitant]
     Active Substance: NALOXONE
     Indication: Product used for unknown indication
     Route: 042
     Dates: start: 20240217, end: 20240318
  32. GUAIFENESIN [Concomitant]
     Active Substance: GUAIFENESIN
     Indication: Cough
     Route: 048
     Dates: start: 20240214, end: 20240315
  33. benzonatate (Tessalon Perles) [Concomitant]
     Indication: Cough
     Route: 048
     Dates: start: 20240214, end: 20240315
  34. albumin human (albumin human 25% intravenous solution) [Concomitant]
     Indication: Hypotension
     Route: 042
     Dates: start: 20240214, end: 20240215
  35. POTASSIUM BICARBONATE [Concomitant]
     Active Substance: POTASSIUM BICARBONATE
     Indication: Product used for unknown indication
     Dosage: DISSOLVE IN WATER OR JUICE
     Route: 048
     Dates: start: 20240211

REACTIONS (17)
  - Abdominal pain [Unknown]
  - Fall [Unknown]
  - Atrial fibrillation [Unknown]
  - Cough [Unknown]
  - Obstructive airways disorder [Unknown]
  - Seizure [Unknown]
  - Sleep apnoea syndrome [Unknown]
  - Anaemia [Unknown]
  - Hypoxia [Unknown]
  - Renal failure [Unknown]
  - Cardiac failure congestive [Unknown]
  - Fatigue [Unknown]
  - Atrioventricular block [Unknown]
  - Hypertension [Unknown]
  - Hyperlipidaemia [Unknown]
  - Hepatitis B [Unknown]
  - Pain [Unknown]
